FAERS Safety Report 4282872-7 (Version None)
Quarter: 2004Q1

REPORT INFORMATION
  Report Type: 
  Country: None (occurrence: None)
  Receive Date: 20040130
  Receipt Date: 20030807
  Transmission Date: 20041129
  Serious: Yes (Other)
  Sender: FDA-Public Use
  Company Number: US-BRISTOL-MYERS SQUIBB COMPANY-12350088

PATIENT
  Age: 80 Year
  Sex: Male

DRUGS (1)
  1. SERZONE [Suspect]
     Route: 048

REACTIONS (1)
  - GRAND MAL CONVULSION [None]
